FAERS Safety Report 5462915-5 (Version None)
Quarter: 2007Q3

REPORT INFORMATION
  Report Type: 
  Country: None (occurrence: None)
  Receive Date: 20070920
  Receipt Date: 20070625
  Transmission Date: 20080115
  Serious: No
  Sender: FDA-Public Use
  Company Number: US-BAUSCH-2007BL002138

PATIENT
  Age: 71 Year
  Sex: Female

DRUGS (2)
  1. ALAWAY [Suspect]
     Indication: LACRIMATION INCREASED
     Route: 047
     Dates: start: 20070611, end: 20070601
  2. ALAWAY [Suspect]
     Indication: EYE ALLERGY
     Route: 047
     Dates: start: 20070611, end: 20070601

REACTIONS (1)
  - VISUAL DISTURBANCE [None]
